FAERS Safety Report 19370152 (Version 3)
Quarter: 2021Q3

REPORT INFORMATION
  Report Type: Report from Study
  Country: US (occurrence: US)
  Receive Date: 20210603
  Receipt Date: 20210804
  Transmission Date: 20211014
  Serious: Yes (Other)
  Sender: FDA-Public Use
  Company Number: NVSC2021US112016

PATIENT
  Sex: Female

DRUGS (1)
  1. KESIMPTA [Suspect]
     Active Substance: OFATUMUMAB
     Indication: MULTIPLE SCLEROSIS
     Dosage: UNK UNK, QMO
     Route: 058
     Dates: start: 20210330, end: 20210701

REACTIONS (4)
  - Relapsing multiple sclerosis [Unknown]
  - Drug ineffective [Unknown]
  - COVID-19 [Unknown]
  - Cough [Unknown]
